FAERS Safety Report 6241627-4 (Version None)
Quarter: 2009Q2

REPORT INFORMATION
  Report Type: 
  Country: None (occurrence: None)
  Receive Date: 20090623
  Receipt Date: 20030908
  Transmission Date: 20091009
  Serious: Yes (Hospitalization)
  Sender: FDA-Public Use
  Company Number: BR-ROCHE-373712

PATIENT
  Sex: Male
  Weight: 61 kg

DRUGS (34)
  1. MYCOPHENOLATE MOFETIL [Suspect]
     Route: 048
     Dates: start: 20030808
  2. MYCOPHENOLATE MOFETIL [Suspect]
     Route: 048
     Dates: start: 20030902
  3. MYCOPHENOLATE MOFETIL [Suspect]
     Route: 048
     Dates: start: 20030904
  4. MYCOPHENOLATE MOFETIL [Suspect]
     Route: 048
     Dates: start: 20030923
  5. MYCOPHENOLATE MOFETIL [Suspect]
     Route: 048
     Dates: start: 20031112
  6. MYCOPHENOLATE MOFETIL [Suspect]
     Route: 048
     Dates: start: 20041209, end: 20050318
  7. MYCOPHENOLATE MOFETIL [Suspect]
     Route: 048
     Dates: start: 20050415
  8. DACLIZUMAB [Suspect]
     Route: 042
     Dates: start: 20030808
  9. DACLIZUMAB [Suspect]
     Route: 042
     Dates: start: 20030822, end: 20031003
  10. GANCICLOVIR [Suspect]
     Route: 048
     Dates: start: 20030901, end: 20030901
  11. GANCICLOVIR [Suspect]
     Route: 048
     Dates: start: 20030907, end: 20031109
  12. GANCICLOVIR [Suspect]
     Route: 042
     Dates: start: 20030818
  13. CYCLOSPORINE [Suspect]
     Dosage: DRUG: CYCLOSPORINE
     Route: 048
     Dates: start: 20030808
  14. CYCLOSPORINE [Suspect]
     Route: 048
     Dates: start: 20030815
  15. CYCLOSPORINE [Suspect]
     Route: 048
     Dates: start: 20030821
  16. CYCLOSPORINE [Suspect]
     Route: 048
     Dates: start: 20031007
  17. CYCLOSPORINE [Suspect]
     Route: 048
     Dates: start: 20031112
  18. CYCLOSPORINE [Suspect]
     Route: 048
     Dates: start: 20040616
  19. CYCLOSPORINE [Suspect]
     Route: 048
     Dates: start: 20050128
  20. PREDNISONE [Suspect]
     Route: 048
     Dates: start: 20030808
  21. PREDNISONE [Suspect]
     Route: 048
     Dates: start: 20030815
  22. PREDNISONE [Suspect]
     Route: 048
     Dates: start: 20030903, end: 20030903
  23. PREDNISONE [Suspect]
     Route: 048
     Dates: start: 20030903
  24. PREDNISONE [Suspect]
     Route: 048
     Dates: start: 20031105
  25. PREDNISONE [Suspect]
     Route: 048
     Dates: start: 20031212
  26. PREDNISONE [Suspect]
     Route: 048
     Dates: start: 20040116
  27. PREDNISONE [Suspect]
     Route: 048
     Dates: start: 20040227
  28. PREDNISONE [Suspect]
     Route: 048
     Dates: start: 20040512
  29. PREDNISONE [Suspect]
     Route: 048
     Dates: start: 20040806
  30. NIFEDIPINE [Concomitant]
     Route: 048
     Dates: start: 20030810
  31. NIFEDIPINE [Concomitant]
     Route: 048
     Dates: start: 20030819, end: 20050528
  32. BACTRIM [Concomitant]
     Route: 048
     Dates: start: 20030828, end: 20040209
  33. RANIDINE [Concomitant]
     Route: 048
     Dates: start: 20030422, end: 20030903
  34. CEFAZOLIN [Concomitant]
     Route: 048
     Dates: start: 20030808

REACTIONS (2)
  - ABDOMINAL DISTENSION [None]
  - CYTOMEGALOVIRUS GASTROINTESTINAL INFECTION [None]
